FAERS Safety Report 17981724 (Version 1)
Quarter: 2020Q3

REPORT INFORMATION
  Report Type: Spontaneous
  Country: US (occurrence: US)
  Receive Date: 20200706
  Receipt Date: 20200706
  Transmission Date: 20201103
  Serious: No
  Sender: FDA-Public Use
  Company Number: US-CIPLA LTD.-2019US08104

PATIENT

DRUGS (3)
  1. METOPROLOL TARTRATE. [Suspect]
     Active Substance: METOPROLOL TARTRATE
     Indication: ATRIAL FIBRILLATION
     Dosage: UNK (5 MG OR 25 MG)
     Route: 065
     Dates: start: 2018
  2. FUROSEMIDE. [Concomitant]
     Active Substance: FUROSEMIDE
     Indication: PRODUCT USED FOR UNKNOWN INDICATION
     Dosage: 20 MILLIGRAM, UNK
     Route: 065
  3. WARFARIN [Suspect]
     Active Substance: WARFARIN
     Indication: ATRIAL FIBRILLATION
     Dosage: 5 MILLIGRAM, QD
     Route: 048
     Dates: start: 2018

REACTIONS (21)
  - Visual impairment [Unknown]
  - Peripheral swelling [Unknown]
  - Blood blister [Unknown]
  - Dry throat [Unknown]
  - Increased appetite [Unknown]
  - Unevaluable event [Unknown]
  - Dry skin [Unknown]
  - Premature ageing [Recovered/Resolved]
  - Patient dissatisfaction with treatment [Unknown]
  - Fluid retention [Unknown]
  - Swelling [Unknown]
  - Condition aggravated [Unknown]
  - Dry mouth [Unknown]
  - Pruritus [Unknown]
  - Muscle atrophy [Recovered/Resolved]
  - Mucosal inflammation [Unknown]
  - Pharyngeal swelling [Unknown]
  - Micturition urgency [Unknown]
  - Oedema [Recovered/Resolved]
  - Joint swelling [Unknown]
  - Lip swelling [Unknown]
